FAERS Safety Report 9252649 (Version 3)
Quarter: 2013Q3

REPORT INFORMATION
  Report Type: Report from Study
  Country: CO (occurrence: CO)
  Receive Date: 20130424
  Receipt Date: 20130930
  Transmission Date: 20140515
  Serious: Yes (Other)
  Sender: FDA-Public Use
  Company Number: CO-VIIV HEALTHCARE LIMITED-A1020794A

PATIENT
  Age: 28 Year
  Sex: Male

DRUGS (3)
  1. LAMIVUDINE-HIV [Suspect]
     Indication: HIV INFECTION
  2. EFAVIRENZ [Suspect]
     Indication: HIV INFECTION
     Route: 048
     Dates: start: 20120803, end: 20130312
  3. TENOFOVIR [Suspect]
     Indication: HIV INFECTION
     Dates: start: 20120801, end: 20130313

REACTIONS (2)
  - Depression [Recovered/Resolved]
  - Lipodystrophy acquired [Not Recovered/Not Resolved]
